FAERS Safety Report 16711877 (Version 1)
Quarter: 2019Q3

REPORT INFORMATION
  Report Type: Spontaneous
  Country: US (occurrence: US)
  Receive Date: 20190816
  Receipt Date: 20190816
  Transmission Date: 20191004
  Serious: No
  Sender: FDA-Public Use
  Company Number: US-FRESENIUS KABI-FK201908982

PATIENT

DRUGS (1)
  1. ADENOSINE INJECTION, USP [Suspect]
     Active Substance: ADENOSINE
     Indication: PRODUCT USED FOR UNKNOWN INDICATION
     Dosage: 100MCG/KG, 150MCG/KG, THEN 200MCG/KG X2
     Route: 065
     Dates: start: 20190809, end: 20190809

REACTIONS (1)
  - Drug ineffective [Unknown]

NARRATIVE: CASE EVENT DATE: 20190809
